FAERS Safety Report 5982402-5 (Version None)
Quarter: 2008Q4

REPORT INFORMATION
  Report Type: 
  Country: None (occurrence: None)
  Receive Date: 20081208
  Receipt Date: 20081202
  Transmission Date: 20090506
  Serious: Yes (Hospitalization)
  Sender: FDA-Public Use
  Company Number: US-BIOGENIDEC-2008BI031193

PATIENT
  Age: 60 Year
  Sex: Female
  Weight: 65 kg

DRUGS (2)
  1. AVONEX [Suspect]
     Indication: MULTIPLE SCLEROSIS
     Route: 030
     Dates: start: 20031001
  2. AVONEX [Suspect]
     Route: 030
     Dates: start: 20060101

REACTIONS (3)
  - HAEMOGLOBIN DECREASED [None]
  - MULTIPLE SCLEROSIS RELAPSE [None]
  - SKIN LESION [None]
